FAERS Safety Report 21869157 (Version 4)
Quarter: 2023Q2

REPORT INFORMATION
  Report Type: Report from Study
  Country: US (occurrence: US)
  Receive Date: 20230117
  Receipt Date: 20230418
  Transmission Date: 20230721
  Serious: Yes (Hospitalization)
  Sender: FDA-Public Use
  Company Number: US-ABBVIE-4270997

PATIENT
  Age: 65 Year
  Sex: Male

DRUGS (2)
  1. IMBRUVICA [Suspect]
     Active Substance: IBRUTINIB
     Indication: Chronic lymphocytic leukaemia
     Route: 048
     Dates: start: 20180825
  2. IMBRUVICA [Suspect]
     Active Substance: IBRUTINIB
     Indication: Chronic lymphocytic leukaemia
     Route: 048
     Dates: start: 20210113

REACTIONS (12)
  - Pulmonary oedema [Recovering/Resolving]
  - COVID-19 [Recovering/Resolving]
  - Pneumonia [Recovering/Resolving]
  - White blood cell count increased [Not Recovered/Not Resolved]
  - White blood cell count increased [Recovered/Resolved]
  - Blood pressure decreased [Recovering/Resolving]
  - COVID-19 [Recovered/Resolved]
  - Malaise [Unknown]
  - Rash [Recovering/Resolving]
  - Adverse drug reaction [Recovering/Resolving]
  - Drug hypersensitivity [Unknown]
  - Malaise [Unknown]

NARRATIVE: CASE EVENT DATE: 20221201
